FAERS Safety Report 15461300 (Version 4)
Quarter: 2018Q4

REPORT INFORMATION
  Report Type: Spontaneous
  Country: US (occurrence: US)
  Receive Date: 20181003
  Receipt Date: 20181217
  Transmission Date: 20190204
  Serious: Yes (Hospitalization, Other)
  Sender: FDA-Public Use
  Company Number: US-PFIZER INC-2018397509

PATIENT
  Age: 47 Year
  Sex: Female

DRUGS (1)
  1. XELJANZ XR [Suspect]
     Active Substance: TOFACITINIB CITRATE
     Dosage: 11 MG, UNK
     Dates: start: 20180817

REACTIONS (6)
  - Aneurysm [Unknown]
  - Nerve compression [Unknown]
  - Volvulus [Unknown]
  - Escherichia infection [Unknown]
  - Cerebrovascular accident [Unknown]
  - Encephalopathy [Unknown]
